FAERS Safety Report 10045461 (Version 1)
Quarter: 2014Q1

REPORT INFORMATION
  Report Type: Spontaneous
  Country: DE (occurrence: DE)
  Receive Date: 20140328
  Receipt Date: 20140328
  Transmission Date: 20141002
  Serious: Yes (Hospitalization)
  Sender: FDA-Public Use
  Company Number: DE-BRISTOL-MYERS SQUIBB COMPANY-20564175

PATIENT
  Age: 51 Year
  Sex: Male

DRUGS (4)
  1. METFORMIN HCL [Suspect]
     Indication: TYPE 2 DIABETES MELLITUS
     Dosage: JUN-2010 TO 12JAN14 -UNKNOWN DOSE?RESTARTED ON UNKNOWN DATE, 500 MG 2XDAY
     Route: 048
  2. LIRAGLUTIDE [Suspect]
     Indication: TYPE 2 DIABETES MELLITUS
     Dosage: MAY10-JUN10?13JAN14-18JAN14
     Route: 048
     Dates: start: 201005, end: 20140118
  3. SITAGLIPTIN PHOSPHATE [Suspect]
     Indication: TYPE 2 DIABETES MELLITUS
     Route: 048
     Dates: start: 201006, end: 201401
  4. L-THYROXINE [Concomitant]
     Indication: THYROID HORMONE REPLACEMENT THERAPY

REACTIONS (1)
  - Pancreatic pseudocyst [Unknown]
